FAERS Safety Report 14012250 (Version 1)
Quarter: 2017Q3

REPORT INFORMATION
  Report Type: Report from Study
  Country: None (occurrence: DE)
  Receive Date: 20170926
  Receipt Date: 20170926
  Transmission Date: 20171128
  Serious: Yes (Death, Hospitalization)
  Sender: FDA-Public Use
  Company Number: DE-ABBVIE-17K-062-2112380-00

PATIENT
  Sex: Male

DRUGS (1)
  1. DUODOPA [Suspect]
     Active Substance: CARBIDOPA\LEVODOPA
     Indication: PARKINSON^S DISEASE
     Dosage: MD: 7.0 ML, CRD: 2.6 ML/H, ED: 1.0 ML
     Route: 050
     Dates: start: 20140718, end: 201709

REACTIONS (2)
  - Parkinson^s disease [Unknown]
  - Pneumonia [Fatal]

NARRATIVE: CASE EVENT DATE: 2017
